FAERS Safety Report 17223449 (Version 2)
Quarter: 2020Q1

REPORT INFORMATION
  Report Type: Spontaneous
  Country: JP (occurrence: JP)
  Receive Date: 20200102
  Receipt Date: 20200309
  Transmission Date: 20200409
  Serious: Yes (Hospitalization)
  Sender: FDA-Public Use
  Company Number: JP-009507513-1909JPN002528J

PATIENT
  Sex: Male

DRUGS (3)
  1. RESLIN TABLETS 25 [Suspect]
     Active Substance: TRAZODONE HYDROCHLORIDE
     Indication: INSOMNIA
     Dosage: 25 MILLIGRAM, PRN
     Route: 048
     Dates: start: 2019
  2. CYMBALTA [Concomitant]
     Active Substance: DULOXETINE HYDROCHLORIDE
     Dosage: UNK
     Route: 048
  3. BELSOMRA [Suspect]
     Active Substance: SUVOREXANT
     Indication: INSOMNIA
     Dosage: 20 MILLIGRAM, PRN
     Route: 048

REACTIONS (14)
  - Feeling abnormal [Unknown]
  - Middle insomnia [Unknown]
  - Therapeutic response unexpected [Unknown]
  - Extrapyramidal disorder [Unknown]
  - Hangover [Unknown]
  - Depressed mood [Unknown]
  - Product use issue [Unknown]
  - Product use in unapproved indication [Unknown]
  - Persistent depressive disorder [Unknown]
  - Anxiety [Unknown]
  - Cerebral disorder [Unknown]
  - Irritability [Unknown]
  - Somnolence [Unknown]
  - Hyposomnia [Unknown]

NARRATIVE: CASE EVENT DATE: 2019
